FAERS Safety Report 7353885-3 (Version None)
Quarter: 2011Q1

REPORT INFORMATION
  Report Type: 
  Country: None (occurrence: None)
  Receive Date: 20110315
  Receipt Date: 20110228
  Transmission Date: 20110831
  Serious: Yes (Other)
  Sender: FDA-Public Use
  Company Number: US-BAYER-2011-016179

PATIENT
  Sex: Female
  Weight: 75 kg

DRUGS (5)
  1. MAGNESIUM [Concomitant]
     Indication: VITAMIN SUPPLEMENTATION
     Route: 048
  2. ONE-A-DAY WOMEN'S 50 + ADVANTAGE [Suspect]
     Dosage: 1 DF, ONCE
     Route: 048
     Dates: start: 20110216
  3. ONE-A-DAY WOMEN'S 50 + ADVANTAGE [Suspect]
     Indication: VITAMIN SUPPLEMENTATION
     Dosage: 1 DF, QD
     Route: 048
     Dates: start: 20080101
  4. GLUCOSAMINE W/CHONDROITIN SULFATE [Concomitant]
     Indication: VITAMIN SUPPLEMENTATION
     Route: 048
  5. FISH OIL [Concomitant]
     Route: 048

REACTIONS (6)
  - HYPERSENSITIVITY [None]
  - LACRIMATION INCREASED [None]
  - VISUAL IMPAIRMENT [None]
  - MIGRAINE [None]
  - PRURITUS [None]
  - EYE SWELLING [None]
